FAERS Safety Report 26076138 (Version 1)
Quarter: 2025Q4

REPORT INFORMATION
  Report Type: Spontaneous
  Country: US (occurrence: US)
  Receive Date: 20251121
  Receipt Date: 20251121
  Transmission Date: 20260117
  Serious: Yes (Hospitalization)
  Sender: INTERCHEM
  Company Number: US-HQ SPECIALTY-US-2025INT000087

PATIENT
  Age: 32 Year
  Sex: Male

DRUGS (9)
  1. DEXMEDETOMIDINE HYDROCHLORIDE [Suspect]
     Active Substance: DEXMEDETOMIDINE HYDROCHLORIDE
     Indication: Anaesthesia
     Dosage: 0.5 MICROGRAM/KILOGRAM, QH
     Route: 042
  2. FENTANYL [Suspect]
     Active Substance: FENTANYL
     Indication: Anaesthesia
     Dosage: 50 MICROGRAM, UNK
     Route: 065
  3. PROPOFOL [Suspect]
     Active Substance: PROPOFOL
     Indication: Anaesthesia
     Dosage: 50 MG, UNK
     Route: 065
  4. PROPOFOL [Suspect]
     Active Substance: PROPOFOL
     Dosage: 100 MICROGRAM/KILOGRAM, UNK
     Route: 042
  5. REMIFENTANIL [Suspect]
     Active Substance: REMIFENTANIL
     Indication: Anaesthesia
     Dosage: 0.03 MICROGRAM/KILOGRAM, 1 MIN
     Route: 042
  6. BUPIVACAINE [Concomitant]
     Active Substance: BUPIVACAINE
     Indication: Nerve block
     Dosage: 0.5% BUPIVACAINE WITH 1:200 000 EPINEPHRINE ON THE OPERATIVE (LEFT) SIDE (0.5 %)
     Route: 065
  7. BUPIVACAINE [Concomitant]
     Active Substance: BUPIVACAINE
     Dosage: 0.25% BUPIVACAINE WITH 1:200 000 EPINEPHRINE ON THE OPERATIVE (RIGHT) SIDE
     Route: 065
  8. EPINEPHRINE [Concomitant]
     Active Substance: EPINEPHRINE
     Indication: Nerve block
     Dosage: 0.5% BUPIVACAINE WITH 1:200 000 EPINEPHRINE ON OPERATIVE (LEFT) SIDE
     Route: 065
  9. EPINEPHRINE [Concomitant]
     Active Substance: EPINEPHRINE
     Dosage: 0.25% BUPIVACAINE WITH 1:200 000 EPINEPHRINE ON OPERATIVE (RIGHT) SIDE
     Route: 065

REACTIONS (1)
  - Oxygen saturation decreased [Recovered/Resolved]
